FAERS Safety Report 4918746-5 (Version None)
Quarter: 2006Q1

REPORT INFORMATION
  Report Type: 
  Country: None (occurrence: None)
  Receive Date: 20060216
  Receipt Date: 20060203
  Transmission Date: 20060701
  Serious: Yes (Other)
  Sender: FDA-Public Use
  Company Number: US200601004574

PATIENT
  Sex: Female
  Weight: 55.8 kg

DRUGS (1)
  1. EVISTA [Suspect]
     Indication: OSTEOPENIA
     Dosage: DAILY (1/D), ORAL
     Route: 048
     Dates: start: 19980101, end: 20051001

REACTIONS (1)
  - TRANSIENT ISCHAEMIC ATTACK [None]
